FAERS Safety Report 7404426-3 (Version None)
Quarter: 2011Q2

REPORT INFORMATION
  Report Type: 
  Country: None (occurrence: None)
  Receive Date: 20110408
  Receipt Date: 20110330
  Transmission Date: 20111010
  Serious: Yes (Other)
  Sender: FDA-Public Use
  Company Number: FR-MERCK-1103FRA00170

PATIENT
  Age: 84 Year
  Sex: Male
  Weight: 84 kg

DRUGS (9)
  1. AMLODIPINE BESYLATE [Concomitant]
     Indication: HYPERTENSION
     Route: 048
     Dates: start: 20061018
  2. HYDROCHLOROTHIAZIDE AND TRIAMTERENE [Concomitant]
     Indication: HYPERTENSION
     Route: 048
     Dates: start: 20061018
  3. CLOPIDOGREL BISULFATE [Concomitant]
     Indication: MYOCARDIAL INFARCTION
     Route: 048
     Dates: start: 20061018
  4. METOPROLOL TARTRATE [Concomitant]
     Indication: HYPERTENSION
     Route: 048
     Dates: start: 20061018
  5. REPAGLINIDE [Concomitant]
     Route: 048
     Dates: start: 20101126, end: 20101215
  6. REPAGLINIDE [Concomitant]
     Route: 048
     Dates: start: 20100902, end: 20101126
  7. REPAGLINIDE [Concomitant]
     Indication: TYPE 2 DIABETES MELLITUS
     Route: 048
     Dates: start: 20100528, end: 20100901
  8. JANUMET [Suspect]
     Indication: TYPE 2 DIABETES MELLITUS
     Route: 048
     Dates: start: 20100528, end: 20101201
  9. ASPIRIN LYSINE [Concomitant]
     Indication: MYOCARDIAL INFARCTION
     Route: 048
     Dates: start: 20061018

REACTIONS (1)
  - COLON CANCER RECURRENT [None]
